FAERS Safety Report 7572416-6 (Version None)
Quarter: 2011Q2

REPORT INFORMATION
  Report Type: 
  Country: None (occurrence: None)
  Receive Date: 20110624
  Receipt Date: 20110621
  Transmission Date: 20111010
  Serious: Yes (Death, Hospitalization, Other)
  Sender: FDA-Public Use
  Company Number: PHFR2011GB02247

PATIENT
  Sex: Male
  Weight: 52 kg

DRUGS (5)
  1. CLOZAPINE [Suspect]
     Indication: SCHIZOPHRENIA
     Dosage: 700 MG, DAILY
     Route: 048
     Dates: start: 20070212
  2. FORTISIP [Concomitant]
     Dosage: 200 ML, DAILY
     Route: 065
  3. RISPERIDONE [Concomitant]
     Dosage: 2 MG, DAILY
     Route: 048
  4. FOLIC ACID [Concomitant]
     Dosage: 5 MG, DAILY
     Route: 048
  5. SENNA [Concomitant]
     Dosage: 7.5 MG, DAILY

REACTIONS (12)
  - CARDIAC ARREST [None]
  - CARDIAC FAILURE [None]
  - DYSPHAGIA [None]
  - WEIGHT DECREASED [None]
  - PNEUMONIA [None]
  - BRONCHITIS [None]
  - PSYCHOTIC DISORDER [None]
  - STAPHYLOCOCCAL INFECTION [None]
  - HALLUCINATION, AUDITORY [None]
  - DYSPNOEA [None]
  - EATING DISORDER [None]
  - BRONCHOPNEUMONIA [None]
